FAERS Safety Report 7482954-2 (Version None)
Quarter: 2011Q2

REPORT INFORMATION
  Report Type: 
  Country: None (occurrence: None)
  Receive Date: 20110516
  Receipt Date: 20110411
  Transmission Date: 20111010
  Serious: No
  Sender: FDA-Public Use
  Company Number: US-BAYER-2011-032250

PATIENT
  Age: 40 Year
  Sex: Female
  Weight: 93 kg

DRUGS (3)
  1. VIGCER [Concomitant]
  2. ALEVE (CAPLET) [Suspect]
     Indication: TOOTHACHE
     Dosage: 2 DF, TID
  3. FUROSEMIDE [Concomitant]

REACTIONS (1)
  - NO ADVERSE EVENT [None]
